FAERS Safety Report 5934870-2 (Version None)
Quarter: 2008Q4

REPORT INFORMATION
  Report Type: 
  Country: None (occurrence: None)
  Receive Date: 20081027
  Receipt Date: 20081010
  Transmission Date: 20090506
  Serious: Yes (Other)
  Sender: FDA-Public Use
  Company Number: PHEH2008US08638

PATIENT
  Age: 68 Year
  Sex: Female

DRUGS (3)
  1. VISUDYNE [Suspect]
     Indication: MACULAR DEGENERATION
     Dates: start: 20080812, end: 20080812
  2. LUCENTIS [Concomitant]
  3. AVASTIN [Concomitant]

REACTIONS (8)
  - BLISTER [None]
  - HYPERAESTHESIA [None]
  - INJECTION SITE EXTRAVASATION [None]
  - INJECTION SITE PAIN [None]
  - SCAB [None]
  - SCAR [None]
  - SKIN EXFOLIATION [None]
  - SWELLING [None]
